FAERS Safety Report 19181130 (Version 1)
Quarter: 2021Q2

REPORT INFORMATION
  Report Type: Report from Study
  Country: US (occurrence: US)
  Receive Date: 20210426
  Receipt Date: 20210426
  Transmission Date: 20210717
  Serious: Yes (Other)
  Sender: FDA-Public Use
  Company Number: US-BAYER-2021-122698

PATIENT
  Sex: Female
  Weight: 115.65 kg

DRUGS (6)
  1. NEXAVAR [Concomitant]
     Active Substance: SORAFENIB
     Dosage: UNK
  2. STIVARGA [Suspect]
     Active Substance: REGORAFENIB
     Indication: SOFT TISSUE NEOPLASM
  3. STIVARGA [Suspect]
     Active Substance: REGORAFENIB
     Indication: METASTASIS
  4. ZOFRAN [Concomitant]
     Active Substance: ONDANSETRON HYDROCHLORIDE
     Dosage: 4 MG
  5. STIVARGA [Suspect]
     Active Substance: REGORAFENIB
     Indication: CHEMOTHERAPY
     Dosage: DAILY DOSE 80 MG FOR 21 DAYS THEN 1 WEEK OFF
     Route: 048
     Dates: start: 20200710
  6. STIVARGA [Suspect]
     Active Substance: REGORAFENIB
     Indication: CONNECTIVE TISSUE NEOPLASM

REACTIONS (4)
  - Blood electrolytes abnormal [Unknown]
  - Product use in unapproved indication [None]
  - Product dose omission issue [Unknown]
  - Off label use [None]
